FAERS Safety Report 12372458 (Version 2)
Quarter: 2016Q2

REPORT INFORMATION
  Report Type: Spontaneous
  Country: IT (occurrence: IT)
  Receive Date: 20160516
  Receipt Date: 20160517
  Transmission Date: 20160815
  Serious: Yes (Hospitalization, Other)
  Sender: FDA-Public Use
  Company Number: IT-APOTEX-2016AP008496

PATIENT
  Age: 61 Year
  Sex: Male

DRUGS (8)
  1. PAROXETINE. [Interacting]
     Active Substance: PAROXETINE
     Indication: DEPRESSED MOOD
     Dosage: 20 MG/DAY
     Route: 065
     Dates: start: 201311
  2. ZOLPIDEM DOC GENERICI [Interacting]
     Active Substance: ZOLPIDEM TARTRATE
     Indication: DEPRESSED MOOD
     Dosage: 10 MG/DAY
     Route: 065
     Dates: start: 201311
  3. INTERFERON [Concomitant]
     Active Substance: INTERFERON
     Indication: CHRONIC HEPATITIS B
     Dosage: UNK, UNKNOWN
     Route: 065
     Dates: start: 200309
  4. PAROXETINE. [Interacting]
     Active Substance: PAROXETINE
     Indication: INSOMNIA
  5. TENOFOVIR DISOPROXIL FUMARATE. [Interacting]
     Active Substance: TENOFOVIR DISOPROXIL FUMARATE
     Indication: CHRONIC HEPATITIS B
     Dosage: 245 MG/DAY
     Route: 065
     Dates: start: 201303, end: 201401
  6. VENLAFAXINA DOC GENERICI [Suspect]
     Active Substance: VENLAFAXINE HYDROCHLORIDE
     Indication: DEPRESSED MOOD
     Dosage: 150 MG/DAY
     Route: 065
     Dates: start: 201311
  7. VENLAFAXINA DOC GENERICI [Interacting]
     Active Substance: VENLAFAXINE HYDROCHLORIDE
     Indication: INSOMNIA
     Dates: start: 201311
  8. ZOLPIDEM DOC GENERICI [Interacting]
     Active Substance: ZOLPIDEM TARTRATE
     Indication: INSOMNIA

REACTIONS (2)
  - Drug interaction [Recovering/Resolving]
  - Hepatitis B [Recovering/Resolving]
